FAERS Safety Report 4589813-3 (Version None)
Quarter: 2005Q1

REPORT INFORMATION
  Report Type: 
  Country: None (occurrence: None)
  Receive Date: 20050223
  Receipt Date: 20050217
  Transmission Date: 20050727
  Serious: Yes (Life-Threatening, Hospitalization)
  Sender: FDA-Public Use
  Company Number: IT-GLAXOSMITHKLINE-B0372561A

PATIENT
  Age: 34 Year
  Sex: Female

DRUGS (1)
  1. ZANTAC [Suspect]
     Route: 042
     Dates: start: 20050213, end: 20050213

REACTIONS (2)
  - HYPOTENSION [None]
  - SHOCK [None]
